FAERS Safety Report 6924450-4 (Version None)
Quarter: 2010Q3

REPORT INFORMATION
  Report Type: 
  Country: None (occurrence: None)
  Receive Date: 20100810
  Receipt Date: 20100730
  Transmission Date: 20110219
  Serious: Yes (Other)
  Sender: FDA-Public Use
  Company Number: FR-GDP-10408679

PATIENT
  Sex: Female
  Weight: 50 kg

DRUGS (2)
  1. DIFFERIN [Suspect]
     Indication: ACNE
     Dosage: (1 DF QD TOPICAL)
     Route: 061
     Dates: start: 20100624, end: 20100625
  2. CYTEAL [Concomitant]

REACTIONS (1)
  - DERMATITIS CONTACT [None]
